FAERS Safety Report 22389580 (Version 1)
Quarter: 2023Q2

REPORT INFORMATION
  Report Type: Report from Study
  Country: CN (occurrence: CN)
  Receive Date: 20230531
  Receipt Date: 20230531
  Transmission Date: 20230721
  Serious: Yes (Hospitalization, Other)
  Sender: FDA-Public Use
  Company Number: CN-ELI_LILLY_AND_COMPANY-CN202305013165

PATIENT
  Sex: Female

DRUGS (2)
  1. CYRAMZA [Suspect]
     Active Substance: RAMUCIRUMAB
     Indication: Gastric cancer
     Dosage: 500 MG, OTHER (D1 Q3W)
     Route: 041
  2. DOCETAXEL [Concomitant]
     Active Substance: DOCETAXEL
     Indication: Gastric cancer
     Dosage: 140 MG, OTHER (D1 Q3W)
     Route: 041

REACTIONS (10)
  - Abdominal pain [Unknown]
  - Malignant neoplasm progression [Unknown]
  - Sinus disorder [Unknown]
  - Foreign body in reproductive tract [Unknown]
  - Pelvic fluid collection [Unknown]
  - Renal cyst [Unknown]
  - Anaemia [Unknown]
  - Portal hypertension [Unknown]
  - Protein total decreased [Unknown]
  - High density lipoprotein increased [Unknown]
